FAERS Safety Report 14117928 (Version 1)
Quarter: 2017Q4

REPORT INFORMATION
  Report Type: Spontaneous
  Country: US (occurrence: US)
  Receive Date: 20171023
  Receipt Date: 20171023
  Transmission Date: 20180321
  Serious: No
  Sender: FDA-Public Use
  Company Number: US-ALLERGAN-1671099US

PATIENT
  Age: 72 Year
  Sex: Male
  Weight: 104.31 kg

DRUGS (4)
  1. LABETALOL [Concomitant]
     Active Substance: LABETALOL\LABETALOL HYDROCHLORIDE
     Indication: HYPERTENSION
     Dosage: UNK
     Route: 048
  2. ELIQUIS [Concomitant]
     Active Substance: APIXABAN
     Indication: THROMBOSIS
     Dosage: UNK
     Route: 048
  3. FLECAINIDE [Concomitant]
     Active Substance: FLECAINIDE
     Indication: ATRIAL FIBRILLATION
     Dosage: 150 MG, BID
     Route: 048
  4. LINZESS [Suspect]
     Active Substance: LINACLOTIDE
     Indication: IRRITABLE BOWEL SYNDROME
     Dosage: 290 MCG, QD
     Route: 048
     Dates: start: 201609

REACTIONS (7)
  - Asthenia [Recovering/Resolving]
  - Libido decreased [Recovering/Resolving]
  - Flatulence [Recovering/Resolving]
  - Nervousness [Recovering/Resolving]
  - Diarrhoea [Recovering/Resolving]
  - Hypoaesthesia [Recovering/Resolving]
  - Headache [Recovering/Resolving]

NARRATIVE: CASE EVENT DATE: 201609
